FAERS Safety Report 7346677-2 (Version None)
Quarter: 2011Q1

REPORT INFORMATION
  Report Type: 
  Country: None (occurrence: None)
  Receive Date: 20110311
  Receipt Date: 20110307
  Transmission Date: 20110831
  Serious: Yes (Other)
  Sender: FDA-Public Use
  Company Number: AU-ABBOTT-11P-008-0709572-00

PATIENT
  Sex: Male
  Weight: 84 kg

DRUGS (1)
  1. LIPIDIL [Suspect]
     Indication: PRODUCT USED FOR UNKNOWN INDICATION
     Dosage: DAILY DOSE: 145MG
     Dates: end: 20101111

REACTIONS (2)
  - RHABDOMYOLYSIS [None]
  - LIVER INJURY [None]
